FAERS Safety Report 9430078 (Version 1)
Quarter: 2013Q3

REPORT INFORMATION
  Report Type: Spontaneous
  Country: IT (occurrence: IT)
  Receive Date: 20130730
  Receipt Date: 20130730
  Transmission Date: 20140515
  Serious: Yes (Other)
  Sender: FDA-Public Use
  Company Number: IT-TEVA-420760ISR

PATIENT
  Age: 71 Year
  Sex: Female
  Weight: 66 kg

DRUGS (3)
  1. FLUOROURACILE TEVA [Suspect]
     Dosage: 600 MG/M2 DAILY;
     Route: 042
     Dates: start: 20121115, end: 20121206
  2. FARMORUBICINA [Suspect]
     Dosage: 90 MG/M2 DAILY;
     Route: 042
     Dates: start: 20121115, end: 20121206
  3. CICLOFOSFAMIDE [Suspect]
     Indication: BREAST CANCER
     Dosage: 600 MG/M2 DAILY;
     Route: 042
     Dates: start: 20121115, end: 20121206

REACTIONS (2)
  - Febrile neutropenia [Recovered/Resolved]
  - Mucosal inflammation [Recovered/Resolved]
